FAERS Safety Report 6611036-4 (Version None)
Quarter: 2010Q1

REPORT INFORMATION
  Report Type: 
  Country: None (occurrence: None)
  Receive Date: 20100302
  Receipt Date: 20100301
  Transmission Date: 20100710
  Serious: No
  Sender: FDA-Public Use
  Company Number: US-ASTRAZENECA-2009UW20474

PATIENT
  Age: 50 Year
  Sex: Male
  Weight: 88.5 kg

DRUGS (11)
  1. SEROQUEL [Suspect]
     Indication: DEPRESSION
     Route: 048
     Dates: start: 20020101, end: 20030101
  2. SEROQUEL [Suspect]
     Indication: SLEEP DISORDER
     Route: 048
     Dates: start: 20020101, end: 20030101
  3. ZYPREXA/SYMBYAX [Concomitant]
     Indication: DEPRESSION
     Dates: start: 20000101, end: 20020101
  4. LITHIUM [Concomitant]
     Indication: DEPRESSION
     Dates: start: 20000101, end: 20020101
  5. CYMBALTA [Concomitant]
     Indication: DEPRESSION
  6. SERZONE [Concomitant]
     Indication: DEPRESSION
     Dosage: DAILY
  7. ZOLOFT [Concomitant]
     Indication: DEPRESSION
  8. PROZAC [Concomitant]
     Indication: DEPRESSION
  9. ALPORAZALAM [Concomitant]
     Indication: DEPRESSION
     Dates: start: 20030101
  10. PAXIL CR [Concomitant]
     Indication: DEPRESSION
     Dosage: DAILY
     Dates: start: 20050101, end: 20060101
  11. EFFEXOR [Concomitant]
     Indication: DEPRESSION
     Dosage: DAILY

REACTIONS (2)
  - HYPERGLYCAEMIA [None]
  - TYPE 2 DIABETES MELLITUS [None]
